FAERS Safety Report 9353106 (Version 1)
Quarter: 2013Q2

REPORT INFORMATION
  Report Type: Spontaneous
  Country: BE (occurrence: BE)
  Receive Date: 20130618
  Receipt Date: 20130618
  Transmission Date: 20140414
  Serious: Yes (Hospitalization)
  Sender: FDA-Public Use
  Company Number: BE-MYLANLABS-2013S1012571

PATIENT
  Age: 58 Year
  Sex: Male
  Weight: 100 kg

DRUGS (9)
  1. VORICONAZOLE [Suspect]
     Indication: BRONCHOPULMONARY ASPERGILLOSIS
     Dosage: LOADING DOSE
     Route: 042
  2. VORICONAZOLE [Interacting]
     Indication: BRONCHOPULMONARY ASPERGILLOSIS
     Dosage: MAINTENANCE THERAPY
     Route: 042
  3. VORICONAZOLE [Interacting]
     Indication: BRONCHOPULMONARY ASPERGILLOSIS
     Route: 048
  4. TACROLIMUS [Interacting]
     Indication: IMMUNOSUPPRESSION
     Route: 048
  5. TACROLIMUS [Interacting]
     Indication: IMMUNOSUPPRESSION
     Route: 048
  6. PARACETAMOL [Suspect]
     Indication: ACCIDENTAL OVERDOSE
     Dosage: INTAKE OF 8G OVER 6H
     Route: 048
  7. BASILIXIMAB [Concomitant]
     Indication: IMMUNOSUPPRESSION
     Dosage: 20MG AS INDUCTION THERAPY
     Route: 065
  8. METHYLPREDNISOLONE [Concomitant]
     Indication: IMMUNOSUPPRESSION
     Route: 065
  9. MYCOPHENOLATE MOFETIL [Concomitant]
     Indication: IMMUNOSUPPRESSION
     Route: 065

REACTIONS (4)
  - Drug level increased [Unknown]
  - Drug interaction [Unknown]
  - Accidental overdose [Recovered/Resolved]
  - Acute hepatic failure [Recovered/Resolved]
